FAERS Safety Report 22077606 (Version 1)
Quarter: 2023Q1

REPORT INFORMATION
  Report Type: Spontaneous
  Country: GB (occurrence: GB)
  Receive Date: 20230309
  Receipt Date: 20230309
  Transmission Date: 20230417
  Serious: Yes (Other)
  Sender: FDA-Public Use
  Company Number: None

PATIENT
  Age: 50 Year
  Sex: Female
  Weight: 112 kg

DRUGS (17)
  1. ATORVASTATIN [Suspect]
     Active Substance: ATORVASTATIN
     Dates: start: 20230110, end: 20230126
  2. BENZYDAMINE [Concomitant]
     Active Substance: BENZYDAMINE
     Dosage: USE 4-8 SPRAYS EVERY ONE AND A HALF TO THREE HOURS
     Dates: start: 20221215
  3. AMOXICILLIN\CLAVULANATE POTASSIUM [Concomitant]
     Active Substance: AMOXICILLIN\CLAVULANATE POTASSIUM
     Indication: Oropharyngeal pain
     Dates: start: 20221208, end: 20230106
  4. EZETIMIBE. [Concomitant]
     Dates: start: 20230126
  5. FERROUS FUMARATE [Concomitant]
     Active Substance: FERROUS FUMARATE
     Dosage: ONE TO BE TAKEN EACH DAY OR ALTERNATE DAYS BEFORE FOOD
     Dates: start: 20230116
  6. HYDROXOCOBALAMIN [Concomitant]
     Active Substance: HYDROXOCOBALAMIN
     Dosage: AS DIRECTED
     Dates: start: 20230124
  7. PNEUMOVAX 23 [Concomitant]
     Active Substance: PNEUMOCOCCAL VACCINE, POLYVALENT 23
     Dosage: AS DIRECTED
     Dates: start: 20230111
  8. NITROFURANTOIN. [Concomitant]
     Dates: start: 20230126
  9. PREGABALIN [Concomitant]
     Active Substance: PREGABALIN
     Dates: start: 20221215
  10. CODEINE [Concomitant]
     Active Substance: CODEINE
  11. DULOXETINE [Concomitant]
     Active Substance: DULOXETINE
  12. EMPAGLIFLOZIN [Concomitant]
     Active Substance: EMPAGLIFLOZIN
  13. GLICLAZIDE [Concomitant]
     Active Substance: GLICLAZIDE
  14. METFORMIN [Concomitant]
     Active Substance: METFORMIN HYDROCHLORIDE
  15. NAPROXEN [Concomitant]
     Active Substance: NAPROXEN
  16. OMEPRAZOLE [Concomitant]
     Active Substance: OMEPRAZOLE
  17. RAMIPRIL [Concomitant]
     Active Substance: RAMIPRIL

REACTIONS (3)
  - Paraesthesia [Unknown]
  - Myalgia [Unknown]
  - Rash [Unknown]
